FAERS Safety Report 9749045 (Version 1)
Quarter: 2013Q4

REPORT INFORMATION
  Report Type: Spontaneous
  Country: US (occurrence: US)
  Receive Date: 20131212
  Receipt Date: 20131212
  Transmission Date: 20140711
  Serious: No
  Sender: FDA-Public Use
  Company Number: US-INCYTE CORPORATION-2013IN002252

PATIENT
  Sex: 0

DRUGS (3)
  1. JAKAFI [Suspect]
     Dosage: 5 MG, QD
     Route: 048
     Dates: start: 2013, end: 201309
  2. FLAGYL [Concomitant]
  3. IMODIUM [Concomitant]

REACTIONS (2)
  - Gastric infection [Not Recovered/Not Resolved]
  - Diarrhoea [Not Recovered/Not Resolved]
